FAERS Safety Report 6713028-3 (Version None)
Quarter: 2010Q2

REPORT INFORMATION
  Report Type: 
  Country: None (occurrence: None)
  Receive Date: 20100506
  Receipt Date: 20100426
  Transmission Date: 20101027
  Serious: Yes (Other)
  Sender: FDA-Public Use
  Company Number: FI-SANOFI-AVENTIS-2010SA024420

PATIENT
  Age: 75 Year
  Sex: Female

DRUGS (5)
  1. MULTAQ [Suspect]
     Route: 048
     Dates: start: 20100408, end: 20100411
  2. BUPRENORPHINE [Concomitant]
     Indication: BACK PAIN
     Dosage: DOSE:1 UNIT(S)
     Route: 003
  3. BURANA [Concomitant]
     Indication: BACK PAIN
     Route: 048
  4. TRAMAL [Concomitant]
     Indication: BACK PAIN
     Route: 065
  5. NORFLEX [Concomitant]
     Indication: BACK PAIN
     Route: 048

REACTIONS (1)
  - LIVER FUNCTION TEST ABNORMAL [None]
